FAERS Safety Report 7532368-1 (Version None)
Quarter: 2011Q2

REPORT INFORMATION
  Report Type: 
  Country: None (occurrence: None)
  Receive Date: 20110608
  Receipt Date: 20110601
  Transmission Date: 20111010
  Serious: Yes (Hospitalization, Other)
  Sender: FDA-Public Use
  Company Number: BR-PFIZER INC-2009304154

PATIENT
  Age: 71 Year
  Sex: Female

DRUGS (5)
  1. TIAFEN [Concomitant]
     Dosage: UNK
     Dates: start: 20080101
  2. CYMBALTA [Suspect]
     Indication: FIBROMYALGIA
     Dosage: UNK
     Dates: start: 20091001
  3. LYRICA [Suspect]
     Indication: FIBROMYALGIA
     Dosage: 150 MG, 1X/DAY (150 MG AT NIGHT)
     Route: 048
     Dates: start: 20070518
  4. PANTOPRAZOLE [Concomitant]
     Indication: GASTRITIS
     Dosage: UNK
     Dates: start: 20061201
  5. SERTRALINE [Concomitant]
     Dosage: UNK
     Dates: start: 20050101

REACTIONS (2)
  - IRRITABLE BOWEL SYNDROME [None]
  - OPTIC NERVE DISORDER [None]
